FAERS Safety Report 12883023 (Version 2)
Quarter: 2018Q3

REPORT INFORMATION
  Report Type: Report from Study
  Country: US (occurrence: US)
  Receive Date: 20161025
  Receipt Date: 20180911
  Transmission Date: 20181010
  Serious: Yes (Hospitalization)
  Sender: FDA-Public Use
  Company Number: US-SA-2016SA174536

PATIENT
  Sex: Female

DRUGS (3)
  1. LUMIZYME [Suspect]
     Active Substance: ALGLUCOSIDASE ALFA
     Indication: GLYCOGEN STORAGE DISEASE TYPE II
     Dosage: UNK UNK,UNK
     Route: 041
     Dates: start: 2014
  2. LUMIZYME [Suspect]
     Active Substance: ALGLUCOSIDASE ALFA
     Dosage: DOSE: 1000.00 FREQUENCY: Q2
     Route: 041
     Dates: start: 20170607
  3. LUMIZYME [Suspect]
     Active Substance: ALGLUCOSIDASE ALFA
     Dosage: 1200 MG, FREQUENCY? Q1 WEEK

REACTIONS (3)
  - Hospitalisation [Unknown]
  - Antibody test positive [Unknown]
  - Motor dysfunction [Unknown]
